FAERS Safety Report 4699501-0 (Version None)
Quarter: 2005Q2

REPORT INFORMATION
  Report Type: 
  Country: None (occurrence: None)
  Receive Date: 20050622
  Receipt Date: 20050610
  Transmission Date: 20051028
  Serious: Yes (Other)
  Sender: FDA-Public Use
  Company Number: 8010859

PATIENT
  Age: 49 Year
  Sex: Female

DRUGS (5)
  1. KEPPRA [Suspect]
     Indication: EPILEPSY
     Dosage: PO
     Route: 048
     Dates: end: 20050301
  2. VALPROIC ACID [Concomitant]
  3. ABILIFY [Concomitant]
  4. ZOLOFT [Concomitant]
  5. REMERON [Concomitant]

REACTIONS (4)
  - DELIRIUM [None]
  - HALLUCINATION, AUDITORY [None]
  - PARANOIA [None]
  - PSYCHOTIC DISORDER [None]
